FAERS Safety Report 4758978-2 (Version None)
Quarter: 2005Q3

REPORT INFORMATION
  Report Type: 
  Country: None (occurrence: None)
  Receive Date: 20050826
  Receipt Date: 20050814
  Transmission Date: 20060218
  Serious: Yes (Other)
  Sender: FDA-Public Use
  Company Number: 2005114285

PATIENT
  Age: 41 Year
  Sex: Female
  Weight: 54.4316 kg

DRUGS (1)
  1. UNISOM [Suspect]
     Indication: OVERDOSE
     Dosage: 48 TABS ONCE, ORAL
     Route: 048
     Dates: start: 20050814, end: 20050814

REACTIONS (3)
  - OVERDOSE [None]
  - TREMOR [None]
  - VISION BLURRED [None]
